FAERS Safety Report 7914303 (Version 3)
Quarter: 2013Q3

REPORT INFORMATION
  Report Type: Spontaneous
  Country: US (occurrence: US)
  Receive Date: 20110426
  Receipt Date: 20130927
  Transmission Date: 20140515
  Serious: Yes (Hospitalization)
  Sender: FDA-Public Use
  Company Number: US-JNJFOC-20110408249

PATIENT
  Age: 67 Year
  Sex: Female

DRUGS (7)
  1. LEVAQUIN [Suspect]
     Indication: POST PROCEDURAL INFECTION
     Route: 048
     Dates: start: 20090512, end: 20090520
  2. VANCOMYCIN [Suspect]
     Indication: POST PROCEDURAL INFECTION
  3. LISINOPRIL [Concomitant]
  4. METFORMIN [Concomitant]
  5. ZOCOR [Concomitant]
  6. METOPROLOL [Concomitant]
  7. HYDROCHLOROTHIAZIDE [Concomitant]

REACTIONS (5)
  - Stevens-Johnson syndrome [Recovering/Resolving]
  - Renal failure acute [Recovered/Resolved]
  - Acute generalised exanthematous pustulosis [Recovering/Resolving]
  - Depression [Unknown]
  - Anxiety [Unknown]
